FAERS Safety Report 9048458 (Version 1)
Quarter: 2013Q1

REPORT INFORMATION
  Report Type: Spontaneous
  Country: US (occurrence: None)
  Receive Date: 20130130
  Receipt Date: 20130130
  Transmission Date: 20140127
  Serious: Yes (Hospitalization)
  Sender: FDA-Public Use
  Company Number: None

PATIENT
  Age: 90 Year
  Sex: 0
  Weight: 70 kg

DRUGS (16)
  1. ECASA [Suspect]
     Dosage: CHRONIC
     Route: 048
  2. PLAVIX [Suspect]
     Dosage: CHRONIC
     Route: 048
  3. LASIX [Concomitant]
  4. AMLODIPINE [Concomitant]
  5. VIT C [Concomitant]
  6. CA +VIT D [Concomitant]
  7. VITAMIN B12 [Concomitant]
  8. FERROUS SULFATE [Concomitant]
  9. SYNTHROID [Concomitant]
  10. MVI [Concomitant]
  11. FISH OIL [Concomitant]
  12. MIRAPEX [Concomitant]
  13. PRAVASTATIN [Concomitant]
  14. ZOLOF [Concomitant]
  15. TRAZODONE [Concomitant]
  16. ZESTORETIC [Concomitant]

REACTIONS (3)
  - Hiatus hernia [None]
  - Femur fracture [None]
  - Anaemia [None]
